FAERS Safety Report 21313604 (Version 4)
Quarter: 2022Q4

REPORT INFORMATION
  Report Type: Report from Study
  Country: ES (occurrence: ES)
  Receive Date: 20220909
  Receipt Date: 20221205
  Transmission Date: 20230113
  Serious: Yes (Hospitalization)
  Sender: FDA-Public Use
  Company Number: ES-GSK-ES2022128286

PATIENT

DRUGS (6)
  1. BELANTAMAB MAFODOTIN [Suspect]
     Active Substance: BELANTAMAB MAFODOTIN
     Indication: Plasma cell myeloma refractory
     Dosage: 2.50 MG, CYC (2.50 MG/KG)
     Route: 042
     Dates: start: 20220215, end: 20220215
  2. BELANTAMAB MAFODOTIN [Suspect]
     Active Substance: BELANTAMAB MAFODOTIN
     Dosage: 2.50 MG, CYC (2.50 MG/KG)
     Route: 042
     Dates: start: 20220308, end: 20220308
  3. BELANTAMAB MAFODOTIN [Suspect]
     Active Substance: BELANTAMAB MAFODOTIN
     Dosage: 2.50 MG, CYC (2.50 MG/KG)
     Route: 042
     Dates: start: 20220329, end: 20220329
  4. BELANTAMAB MAFODOTIN [Suspect]
     Active Substance: BELANTAMAB MAFODOTIN
     Dosage: 2.50 MG, CYC (2.50 MG/KG)
     Route: 042
     Dates: start: 20220426, end: 20220426
  5. BELANTAMAB MAFODOTIN [Suspect]
     Active Substance: BELANTAMAB MAFODOTIN
     Dosage: 2.50 MG, CYC  (2.50 MG/KG)
     Route: 042
     Dates: start: 20220517, end: 20220517
  6. BELANTAMAB MAFODOTIN [Suspect]
     Active Substance: BELANTAMAB MAFODOTIN
     Dosage: 2.50 MG, CYC  (2.50 MG/KG)
     Route: 042
     Dates: start: 20220607

REACTIONS (1)
  - Pathological fracture [Recovered/Resolved]

NARRATIVE: CASE EVENT DATE: 20220906
